FAERS Safety Report 8301250-4 (Version None)
Quarter: 2012Q2

REPORT INFORMATION
  Report Type: 
  Country: None (occurrence: None)
  Receive Date: 20120420
  Receipt Date: 20120420
  Transmission Date: 20120825
  Serious: Yes (Disabling, Other)
  Sender: FDA-Public Use
  Company Number: None

PATIENT
  Age: 10 Year
  Sex: Female
  Weight: 30.844 kg

DRUGS (1)
  1. HYDROGEN PEROXIDE SOLUTION [Suspect]
     Indication: INFECTION PROPHYLAXIS
     Dates: start: 20120410, end: 20120418

REACTIONS (3)
  - ACCIDENTAL EXPOSURE [None]
  - PRODUCT MEASURED POTENCY ISSUE [None]
  - CHEMICAL INJURY [None]
